FAERS Safety Report 7771843-1 (Version None)
Quarter: 2011Q3

REPORT INFORMATION
  Report Type: 
  Country: None (occurrence: None)
  Receive Date: 20110922
  Receipt Date: 20110418
  Transmission Date: 20111222
  Serious: Yes (Hospitalization)
  Sender: FDA-Public Use
  Company Number: US-ASTRAZENECA-2007UW05609

PATIENT
  Age: 40 Year
  Sex: Female
  Weight: 103.9 kg

DRUGS (8)
  1. SEROQUEL [Suspect]
     Indication: SCHIZOPHRENIA
     Dosage: 200 TO 500 MG
     Route: 048
     Dates: start: 20000301, end: 20070101
  2. NAVANE [Concomitant]
     Dates: start: 20040101, end: 20050101
  3. RISPERDAL [Concomitant]
     Dates: start: 20010101, end: 20060101
  4. SEROQUEL [Suspect]
     Indication: DEPRESSION
     Dosage: 200 TO 500 MG
     Route: 048
     Dates: start: 20000301, end: 20070101
  5. SEROQUEL [Suspect]
     Indication: BIPOLAR DISORDER
     Dosage: 200 TO 500 MG
     Route: 048
     Dates: start: 20000301, end: 20070101
  6. ABILIFY [Concomitant]
     Dates: start: 20040101, end: 20050101
  7. HALDOL [Concomitant]
  8. ZYPREXA [Concomitant]
     Dates: start: 20010101, end: 20030101

REACTIONS (2)
  - SUICIDE ATTEMPT [None]
  - TYPE 2 DIABETES MELLITUS [None]
